FAERS Safety Report 9619739 (Version 1)
Quarter: 2013Q4

REPORT INFORMATION
  Report Type: Spontaneous
  Country: RO (occurrence: RO)
  Receive Date: 20131014
  Receipt Date: 20131014
  Transmission Date: 20140711
  Serious: Yes (Other)
  Sender: FDA-Public Use
  Company Number: RO-BAXTER-2013BAX039882

PATIENT
  Age: 3 Year
  Sex: Male

DRUGS (14)
  1. ENDOXAN 1G [Suspect]
     Indication: CONGENITAL DYSKERATOSIS
     Dosage: DAYS -6 AND -5
     Route: 065
  2. FLUDARABINE [Suspect]
     Indication: CONGENITAL DYSKERATOSIS
     Dosage: DAYS -10 TO -5
     Route: 065
  3. THYMOGLOBULIN [Suspect]
     Indication: CONGENITAL DYSKERATOSIS
     Dosage: DAYS -5 TO -2
     Route: 065
  4. CYCLOSPORINE [Suspect]
     Indication: PROPHYLAXIS AGAINST GRAFT VERSUS HOST DISEASE
     Dosage: ON DAY -1
     Route: 042
  5. CYCLOSPORINE [Suspect]
     Dosage: FULL DOSE
     Route: 048
  6. CYCLOSPORINE [Suspect]
     Dosage: GRADUALLY WITHDRAWN
     Route: 048
  7. METHOTREXATE [Suspect]
     Indication: PROPHYLAXIS AGAINST GRAFT VERSUS HOST DISEASE
     Dosage: ON DAY 1
     Route: 042
  8. METHOTREXATE [Suspect]
     Dosage: DAYS 3, 6, 11
     Route: 042
  9. GRANULOCYTE COLONY-STIMULATING FACTOR NOS [Suspect]
     Indication: STEM CELL TRANSPLANT
     Route: 065
  10. CIPROFLOXACIN [Concomitant]
     Indication: ANTIBIOTIC PROPHYLAXIS
     Route: 048
  11. METRONIDAZOLE [Concomitant]
     Indication: ANTIBIOTIC PROPHYLAXIS
     Route: 048
  12. FLUCONAZOLE [Concomitant]
     Indication: PROPHYLAXIS
     Route: 048
  13. ACYCLOVIR [Concomitant]
     Indication: PROPHYLAXIS
     Route: 048
  14. COTRIMOXAZOLE [Concomitant]
     Indication: PROPHYLAXIS
     Dosage: DAY -6 TO DAY 1
     Route: 048

REACTIONS (3)
  - Febrile neutropenia [Recovered/Resolved]
  - Cytomegalovirus infection [Recovered/Resolved]
  - Graft versus host disease in skin [Recovered/Resolved]
